FAERS Safety Report 15468215 (Version 5)
Quarter: 2018Q4

REPORT INFORMATION
  Report Type: Spontaneous
  Country: US (occurrence: US)
  Receive Date: 20181005
  Receipt Date: 20181115
  Transmission Date: 20190204
  Serious: No
  Sender: FDA-Public Use
  Company Number: PHEH2018US041425

PATIENT
  Age: 65 Year
  Sex: Female

DRUGS (5)
  1. LEVOTHYROXINE. [Concomitant]
     Active Substance: LEVOTHYROXINE
     Dosage: 50 MG, QD
     Route: 065
  2. LEVOTHYROXINE. [Concomitant]
     Active Substance: LEVOTHYROXINE
     Indication: PRODUCT USED FOR UNKNOWN INDICATION
     Dosage: 75 MG, QD
     Route: 065
  3. AFINITOR [Suspect]
     Active Substance: EVEROLIMUS
     Indication: RENAL CANCER
     Dosage: 5 MG, QD
     Route: 048
  4. LENVIMA [Suspect]
     Active Substance: LENVATINIB
     Indication: RENAL CANCER
     Dosage: 18 MG, QD
     Route: 048
  5. LENVIMA [Suspect]
     Active Substance: LENVATINIB
     Dosage: 10 MG, QD
     Route: 048

REACTIONS (14)
  - Vomiting [Unknown]
  - Ageusia [Unknown]
  - Decreased appetite [Unknown]
  - Blood glucose increased [Unknown]
  - Gastrooesophageal reflux disease [Unknown]
  - Nausea [Unknown]
  - Constipation [Unknown]
  - Weight decreased [Unknown]
  - Glossitis [Unknown]
  - Diarrhoea [Unknown]
  - Headache [Unknown]
  - Neck pain [Unknown]
  - Skin exfoliation [Unknown]
  - Thyroid hormones increased [Unknown]

NARRATIVE: CASE EVENT DATE: 201809
